FAERS Safety Report 5263268-8 (Version None)
Quarter: 2007Q1

REPORT INFORMATION
  Report Type: 
  Country: None (occurrence: None)
  Receive Date: 20070312
  Receipt Date: 20070226
  Transmission Date: 20070707
  Serious: Yes (Life-Threatening, Hospitalization, Other)
  Sender: FDA-Public Use
  Company Number: US-ELI_LILLY_AND_COMPANY-US200701005770

PATIENT
  Age: 46 Year
  Sex: Female

DRUGS (16)
  1. CYMBALTA [Suspect]
     Indication: DEPRESSION
     Dosage: 60 MG, DAILY (1/D)
     Route: 048
  2. CYMBALTA [Suspect]
     Dosage: 120 MG, DAILY (1/D)
     Route: 048
     Dates: start: 20060101, end: 20070211
  3. CYMBALTA [Suspect]
     Dosage: 90 MG, DAILY (1/D)
     Route: 048
     Dates: start: 20070212, end: 20070214
  4. CYMBALTA [Suspect]
     Dosage: 60 MG, DAILY (1/D)
     Route: 048
     Dates: start: 20070215, end: 20070217
  5. CYMBALTA [Suspect]
     Dosage: 30 MG, DAILY (1/D)
     Route: 048
     Dates: start: 20070218, end: 20070220
  6. CYMBALTA [Suspect]
     Dosage: 60 MG, 2/D
     Route: 048
  7. PROPRANOLOL [Concomitant]
     Indication: ANXIETY
  8. AMBIEN [Concomitant]
     Indication: SLEEP DISORDER
     Dosage: 10 MG, UNK
     Route: 048
  9. AMBIEN [Concomitant]
     Dosage: 20X10 MG
     Route: 048
     Dates: start: 20070222, end: 20070222
  10. VERAPAMIL [Concomitant]
     Indication: BLOOD PRESSURE
  11. HYDROCHLORZIDE [Concomitant]
     Indication: BLOOD PRESSURE
  12. POTASSIUM ACETATE [Concomitant]
  13. ZOCOR [Concomitant]
     Indication: BLOOD CHOLESTEROL
  14. ATIVAN [Concomitant]
     Dosage: UNK, UNK
     Route: 048
  15. ATIVAN [Concomitant]
     Route: 048
     Dates: start: 20070222, end: 20070222
  16. NPH INSULIN [Concomitant]
     Dosage: 100 U, UNK
     Dates: start: 20070222, end: 20070222

REACTIONS (6)
  - IMPAIRED WORK ABILITY [None]
  - MENTAL IMPAIRMENT [None]
  - PARAESTHESIA [None]
  - RESPIRATORY FAILURE [None]
  - SUICIDE ATTEMPT [None]
  - SYNCOPE [None]
